FAERS Safety Report 4727554-X (Version None)
Quarter: 2005Q3

REPORT INFORMATION
  Report Type: 
  Country: None (occurrence: None)
  Receive Date: 20050727
  Receipt Date: 20050727
  Transmission Date: 20060218
  Serious: Yes (Hospitalization)
  Sender: FDA-Public Use
  Company Number: None

PATIENT
  Sex: Female
  Weight: 57.1532 kg

DRUGS (12)
  1. IRESSA [Suspect]
     Indication: PANCREATIC CARCINOMA
     Dosage: 250 MG DAILY ORAL
     Route: 048
     Dates: start: 20050630, end: 20050724
  2. PACLITAXEL [Suspect]
     Indication: PANCREATIC CARCINOMA
     Dosage: 66 MG WEEKLY INTRAVENOU
     Route: 042
     Dates: start: 20050712, end: 20050718
  3. RADIATION THERAPY [Concomitant]
  4. FENTANYL [Concomitant]
  5. SCOPALAMINE [Concomitant]
  6. TOPROL-XL [Concomitant]
  7. ASPIRIN [Concomitant]
  8. ZOFRAN [Concomitant]
  9. ATIVAN [Concomitant]
  10. PROZAC [Concomitant]
  11. NITROGLYCERIN [Concomitant]
  12. GLYBURIDE/METAFORMIN [Concomitant]

REACTIONS (4)
  - ABDOMINAL PAIN [None]
  - DIARRHOEA [None]
  - NAUSEA [None]
  - VOMITING [None]
